FAERS Safety Report 14292240 (Version 1)
Quarter: 2017Q4

REPORT INFORMATION
  Report Type: Spontaneous
  Country: US (occurrence: US)
  Receive Date: 20171215
  Receipt Date: 20171215
  Transmission Date: 20180321
  Serious: No
  Sender: FDA-Public Use
  Company Number: US-PERRIGO-17US024130

PATIENT
  Age: 22 Year
  Sex: Female
  Weight: 61.22 kg

DRUGS (1)
  1. TIOCONAZOLE. [Suspect]
     Active Substance: TIOCONAZOLE
     Indication: VULVOVAGINAL MYCOTIC INFECTION
     Dosage: 300 MG, SINGLE
     Route: 067
     Dates: start: 20170531, end: 20170531

REACTIONS (1)
  - Vaginal discharge [Recovering/Resolving]

NARRATIVE: CASE EVENT DATE: 20170601
